FAERS Safety Report 6405805-3 (Version None)
Quarter: 2009Q4

REPORT INFORMATION
  Report Type: 
  Country: None (occurrence: None)
  Receive Date: 20091019
  Receipt Date: 20091009
  Transmission Date: 20100525
  Serious: Yes (Hospitalization)
  Sender: FDA-Public Use
  Company Number: US-BRISTOL-MYERS SQUIBB COMPANY-14813265

PATIENT
  Age: 50 Year
  Sex: Female
  Weight: 76 kg

DRUGS (10)
  1. TAXOL [Suspect]
     Indication: BREAST CANCER
     Dosage: LAST DOSE ADMINISTERED: 02-OCT-2009.
     Dates: start: 20090911
  2. CYTOXAN [Suspect]
     Indication: BREAST CANCER
     Dates: start: 20090619, end: 20090821
  3. ADRIAMYCIN PFS [Suspect]
     Indication: BREAST CANCER
     Dates: start: 20090619, end: 20090821
  4. LISINOPRIL [Concomitant]
     Route: 048
  5. XANAX [Concomitant]
  6. ZOFRAN [Concomitant]
     Dosage: FREQUENCY: PRN.
     Route: 048
     Dates: start: 20090612
  7. BENADRYL [Concomitant]
     Route: 042
     Dates: start: 20090911
  8. DECADRON [Concomitant]
     Route: 042
     Dates: start: 20090619
  9. TAGAMET [Concomitant]
     Route: 042
     Dates: start: 20090911
  10. ALOXI [Concomitant]
     Route: 042
     Dates: start: 20090619

REACTIONS (1)
  - ANGINA PECTORIS [None]
